FAERS Safety Report 10757736 (Version 1)
Quarter: 2015Q1

REPORT INFORMATION
  Report Type: Report from Study
  Country: US (occurrence: US)
  Receive Date: 20150203
  Receipt Date: 20150203
  Transmission Date: 20150721
  Serious: Yes (Other)
  Sender: FDA-Public Use
  Company Number: US-UCBSA-2015002510

PATIENT
  Sex: Female

DRUGS (7)
  1. METHOTREXATE [Suspect]
     Active Substance: METHOTREXATE
     Dosage: INCREASED DOSE
     Dates: start: 2014
  2. METHOTREXATE [Suspect]
     Active Substance: METHOTREXATE
     Indication: PRODUCT USED FOR UNKNOWN INDICATION
     Dosage: 1 MONTH
     Dates: start: 2014, end: 2014
  3. ASPIRIN. [Concomitant]
     Active Substance: ASPIRIN
     Indication: PRODUCT USED FOR UNKNOWN INDICATION
     Dosage: 1, ONCE DAILY (QD)
  4. 5-FU [Concomitant]
     Active Substance: FLUOROURACIL
     Indication: PRECANCEROUS SKIN LESION
     Dosage: FOR 3 WEEKS
     Route: 061
     Dates: start: 201408
  5. HUMIRA [Suspect]
     Active Substance: ADALIMUMAB
     Indication: RHEUMATOID ARTHRITIS
     Dosage: UNK
     Dates: start: 2014, end: 2014
  6. HUMIRA [Suspect]
     Active Substance: ADALIMUMAB
     Dosage: HALF DOSE
     Dates: start: 2014, end: 2014
  7. CERTOLIZUMAB PEGOL [Suspect]
     Active Substance: CERTOLIZUMAB PEGOL
     Indication: PRODUCT USED FOR UNKNOWN INDICATION
     Dosage: 3.5 MONTHS
     Dates: start: 2014, end: 2014

REACTIONS (16)
  - Injection site swelling [Unknown]
  - Injection site pain [Unknown]
  - Cellulitis [Unknown]
  - Injection site warmth [Unknown]
  - Injection site erythema [Unknown]
  - Oedema peripheral [Unknown]
  - Anal ulcer [Recovering/Resolving]
  - Stomatitis [Recovered/Resolved]
  - Precancerous skin lesion [Recovered/Resolved]
  - Erythema [Unknown]
  - Arthropathy [Unknown]
  - Feeling hot [Unknown]
  - Pharyngeal ulceration [Recovered/Resolved]
  - Injection site bruising [Unknown]
  - Drug ineffective [Unknown]
  - Activities of daily living impaired [Unknown]

NARRATIVE: CASE EVENT DATE: 2014
